FAERS Safety Report 9729431 (Version 2)
Quarter: 2015Q3

REPORT INFORMATION
  Report Type: Spontaneous
  Country: US (occurrence: US)
  Receive Date: 20131204
  Receipt Date: 20150804
  Transmission Date: 20151125
  Serious: No
  Sender: FDA-Public Use
  Company Number: US-GILEAD-2009-0021363

PATIENT
  Age: 67 Year
  Sex: Female
  Weight: 142.43 kg

DRUGS (15)
  1. ZYRTEC [Concomitant]
     Active Substance: CETIRIZINE HYDROCHLORIDE
  2. CUTIVATE [Concomitant]
     Active Substance: FLUTICASONE PROPIONATE
  3. SPIRIVA [Concomitant]
     Active Substance: TIOTROPIUM BROMIDE MONOHYDRATE
  4. METOPROLOL [Concomitant]
     Active Substance: METOPROLOL
  5. OXYCODONE [Concomitant]
     Active Substance: OXYCODONE
  6. ACIPHEX [Concomitant]
     Active Substance: RABEPRAZOLE SODIUM
  7. STOOL SOFTENER [Concomitant]
     Active Substance: DOCUSATE CALCIUM
  8. OXYGEN. [Concomitant]
     Active Substance: OXYGEN
  9. LANOXIN [Concomitant]
     Active Substance: DIGOXIN
  10. LETAIRIS [Suspect]
     Active Substance: AMBRISENTAN
     Indication: PULMONARY ARTERIAL HYPERTENSION
     Route: 048
     Dates: start: 20090317, end: 20090402
  11. REMODULIN [Concomitant]
     Active Substance: TREPROSTINIL
  12. WARFARIN SODIUM. [Concomitant]
     Active Substance: WARFARIN SODIUM
  13. NOVOLOG [Concomitant]
     Active Substance: INSULIN ASPART
  14. LASIX [Concomitant]
     Active Substance: FUROSEMIDE
  15. TYLENOL [Concomitant]
     Active Substance: ACETAMINOPHEN

REACTIONS (1)
  - Fluid retention [Unknown]
